FAERS Safety Report 17601165 (Version 1)
Quarter: 2020Q1

REPORT INFORMATION
  Report Type: Spontaneous
  Country: BR (occurrence: BR)
  Receive Date: 20200330
  Receipt Date: 20200330
  Transmission Date: 20200409
  Serious: Yes (Other)
  Sender: FDA-Public Use
  Company Number: BR-US-PROVELL PHARMACEUTICALS LLC-9153498

PATIENT
  Sex: Female

DRUGS (5)
  1. LEVOTHYROXINE SODIUM. [Suspect]
     Active Substance: LEVOTHYROXINE SODIUM
     Indication: PRODUCT USED FOR UNKNOWN INDICATION
     Dosage: UNKNOWN DOSE OF MERCK^S LEVOTHYROXINE SODIUM WHILE ON TREATMENT WITH PURAN (LEVOTHYROXINE)
  2. PURAN [Suspect]
     Active Substance: LEVOTHYROXINE SODIUM
  3. PURAN [Suspect]
     Active Substance: LEVOTHYROXINE SODIUM
     Indication: PRODUCT USED FOR UNKNOWN INDICATION
  4. LEVOTHYROXINE SODIUM. [Suspect]
     Active Substance: LEVOTHYROXINE SODIUM
     Dosage: RESUMED TREATMENT
     Dates: start: 202002
  5. PURAN [Suspect]
     Active Substance: LEVOTHYROXINE SODIUM

REACTIONS (3)
  - Blood thyroid stimulating hormone abnormal [Unknown]
  - Suicidal ideation [Unknown]
  - Depression [Unknown]
